FAERS Safety Report 4760557-8 (Version None)
Quarter: 2005Q3

REPORT INFORMATION
  Report Type: 
  Country: None (occurrence: None)
  Receive Date: 20050826
  Receipt Date: 20050224
  Transmission Date: 20060218
  Serious: Yes (Death)
  Sender: FDA-Public Use
  Company Number: USA-2005-0019065

PATIENT
  Age: 58 Year
  Sex: Male

DRUGS (10)
  1. OXYCONTIN [Suspect]
  2. OXYCODONE HCL [Suspect]
  3. SERTRALINE HCL [Suspect]
  4. BUPROPION HCL [Suspect]
  5. BENZODIAZEPINE DIVATIVES [Suspect]
  6. ACETAMINOPHEN [Suspect]
  7. ETHANOL (ETHANOL) [Suspect]
  8. TRAMADOL HCL [Suspect]
  9. OXYMORPHONE HYDROCHLORIDE [Suspect]
  10. DIAZEPAM [Suspect]

REACTIONS (1)
  - ACCIDENTAL OVERDOSE [None]
